FAERS Safety Report 4589127-1 (Version None)
Quarter: 2005Q1

REPORT INFORMATION
  Report Type: 
  Country: None (occurrence: None)
  Receive Date: 20050125
  Receipt Date: 20041119
  Transmission Date: 20050727
  Serious: No
  Sender: FDA-Public Use
  Company Number: USA040361772

PATIENT
  Age: 73 Year
  Sex: Female
  Weight: 61 kg

DRUGS (12)
  1. FORTEO [Suspect]
     Indication: OSTEOPOROSIS
     Dosage: 20 UG/1 DAY
     Dates: start: 20040309
  2. VITAMIN D [Concomitant]
  3. CELEBREX [Concomitant]
  4. TYLENOL [Concomitant]
  5. TRIAVIL [Concomitant]
  6. ATENOLOL [Concomitant]
  7. DIOVAN [Concomitant]
  8. ZETIA [Concomitant]
  9. PEPTO-BISMOL (BISMUTH SUBSALICYLATE) [Concomitant]
  10. LIBRAX [Concomitant]
  11. LOMOTIL [Concomitant]
  12. IBUPROFEN [Concomitant]

REACTIONS (10)
  - ABDOMINAL PAIN UPPER [None]
  - BACK PAIN [None]
  - CATARACT OPERATION [None]
  - FEELING ABNORMAL [None]
  - INJECTION SITE PAIN [None]
  - INJECTION SITE WARMTH [None]
  - NAUSEA [None]
  - PAIN [None]
  - PAIN IN EXTREMITY [None]
  - SUBCUTANEOUS NODULE [None]
